FAERS Safety Report 13660594 (Version 5)
Quarter: 2018Q1

REPORT INFORMATION
  Report Type: Spontaneous
  Country: AU (occurrence: AU)
  Receive Date: 20170616
  Receipt Date: 20180313
  Transmission Date: 20180508
  Serious: Yes (Hospitalization, Other)
  Sender: FDA-Public Use
  Company Number: AU-009507513-1706AUS005752

PATIENT
  Age: 59 Year
  Sex: Male

DRUGS (7)
  1. PRAMIPEXOLE DIHYDROCHLORIDE. [Suspect]
     Active Substance: PRAMIPEXOLE DIHYDROCHLORIDE
     Indication: RESTLESS LEGS SYNDROME
     Dosage: 3 MG, ONCE
     Route: 048
  2. VENLAFAXINE HYDROCHLORIDE. [Suspect]
     Active Substance: VENLAFAXINE HYDROCHLORIDE
     Indication: ORTHOSTATIC HYPOTENSION
     Dosage: 2250 MG, ONCE
     Route: 048
  3. MIRTAZAPINE. [Suspect]
     Active Substance: MIRTAZAPINE
     Indication: ORTHOSTATIC HYPOTENSION
     Dosage: 360 MG, ONCE
     Route: 048
  4. MIRTAZAPINE. [Suspect]
     Active Substance: MIRTAZAPINE
     Dosage: 15 MG, ONCE DAILY
     Route: 048
  5. PRAMIPEXOLE DIHYDROCHLORIDE. [Suspect]
     Active Substance: PRAMIPEXOLE DIHYDROCHLORIDE
     Dosage: 0.125 MG, TID
     Route: 048
  6. VENLAFAXINE HYDROCHLORIDE. [Suspect]
     Active Substance: VENLAFAXINE HYDROCHLORIDE
     Dosage: 150 MG, ONCE DAILY SLOW-RELEASE
     Route: 048
  7. FLUDROCORTISONE [Concomitant]
     Active Substance: FLUDROCORTISONE
     Indication: ORTHOSTATIC HYPOTENSION
     Dosage: UNK

REACTIONS (18)
  - Hallucination, visual [Recovered/Resolved]
  - Dizziness postural [Recovering/Resolving]
  - Intentional overdose [Unknown]
  - Agitation [Recovered/Resolved]
  - Suicidal ideation [Unknown]
  - Pressure of speech [Recovering/Resolving]
  - Disturbance in attention [Recovering/Resolving]
  - Toxicity to various agents [Unknown]
  - Blood lactic acid increased [Recovering/Resolving]
  - Heart rate increased [Recovering/Resolving]
  - Ataxia [Recovering/Resolving]
  - Intentional product misuse [Unknown]
  - Myoclonus [Recovering/Resolving]
  - Hypervigilance [Recovering/Resolving]
  - Dysuria [Recovered/Resolved]
  - Urinary retention [Recovered/Resolved]
  - Feeling jittery [Recovering/Resolving]
  - Mobility decreased [Unknown]
